FAERS Safety Report 5988210-3 (Version None)
Quarter: 2008Q4

REPORT INFORMATION
  Report Type: 
  Country: None (occurrence: None)
  Receive Date: 20081204
  Receipt Date: 20081119
  Transmission Date: 20090506
  Serious: Yes (Other)
  Sender: FDA-Public Use
  Company Number: ALK_00763_2008

PATIENT
  Age: 46 Year
  Sex: Female

DRUGS (3)
  1. VIVITROL [Suspect]
     Indication: DRUG USE FOR UNKNOWN INDICATION
     Dosage: INTRAMUSCULAR
     Route: 030
     Dates: start: 20081112
  2. HYDROCHLOROTHIAZIDE W/TRIAMTERENE [Concomitant]
  3. ZOLOFT [Concomitant]

REACTIONS (5)
  - ANXIETY [None]
  - HEART RATE INCREASED [None]
  - INSOMNIA [None]
  - PSYCHOTIC DISORDER [None]
  - THINKING ABNORMAL [None]
